FAERS Safety Report 17621630 (Version 1)
Quarter: 2020Q2

REPORT INFORMATION
  Report Type: Spontaneous
  Country: US (occurrence: US)
  Receive Date: 20200402
  Receipt Date: 20200402
  Transmission Date: 20200713
  Serious: Yes (Hospitalization, Other)
  Sender: FDA-Public Use
  Company Number: None

PATIENT
  Age: 68 Year
  Sex: Male

DRUGS (13)
  1. AGGRENOX [Concomitant]
     Active Substance: ASPIRIN\DIPYRIDAMOLE
  2. METOCLOPRAM [Concomitant]
     Active Substance: METOCLOPRAMIDE
  3. MIDODRINE [Concomitant]
     Active Substance: MIDODRINE
  4. MYCOPHENOLATE [Suspect]
     Active Substance: MYCOPHENOLIC ACID
     Indication: RENAL TRANSPLANT
     Route: 048
     Dates: start: 20150618
  5. CLOPIDOGREL [Concomitant]
     Active Substance: CLOPIDOGREL BISULFATE
  6. FLUDROCORT [Concomitant]
  7. MULTI VIT [Concomitant]
     Active Substance: VITAMINS
  8. NORTHERA [Concomitant]
     Active Substance: DROXIDOPA
  9. POTASSIUM [Concomitant]
     Active Substance: POTASSIUM
  10. TACROLIMUS. [Suspect]
     Active Substance: TACROLIMUS
     Indication: RENAL TRANSPLANT
     Route: 048
     Dates: start: 20150618
  11. SIMVASTATIN. [Concomitant]
     Active Substance: SIMVASTATIN
  12. PRILOSEC [Concomitant]
     Active Substance: OMEPRAZOLE MAGNESIUM
  13. MAG OXIDE [Concomitant]
     Active Substance: MAGNESIUM OXIDE

REACTIONS (1)
  - Cerebrovascular accident [None]

NARRATIVE: CASE EVENT DATE: 20200402
